FAERS Safety Report 14305153 (Version 1)
Quarter: 2017Q4

REPORT INFORMATION
  Report Type: Spontaneous
  Country: JP (occurrence: JP)
  Receive Date: 20171219
  Receipt Date: 20171219
  Transmission Date: 20180321
  Serious: Yes (Hospitalization, Other)
  Sender: FDA-Public Use
  Company Number: JP-OTSUKA-03100-JPN-06-0311

PATIENT
  Age: 26 Year
  Sex: Female

DRUGS (3)
  1. ABILIFY [Suspect]
     Active Substance: ARIPIPRAZOLE
     Dosage: 6 MG, QD
     Route: 048
  2. SEROQUEL [Concomitant]
     Active Substance: QUETIAPINE FUMARATE
     Route: 048
  3. LEXOTAN [Concomitant]
     Active Substance: BROMAZEPAM
     Route: 048

REACTIONS (1)
  - Hallucination [Unknown]
